FAERS Safety Report 23959665 (Version 3)
Quarter: 2024Q3

REPORT INFORMATION
  Report Type: Spontaneous
  Country: GB (occurrence: GB)
  Receive Date: 20240611
  Receipt Date: 20240825
  Transmission Date: 20241016
  Serious: Yes (Other)
  Sender: SANDOZ
  Company Number: GB-MLMSERVICE-20240517-PI059713-00270-2

PATIENT
  Sex: Female
  Weight: 1 kg

DRUGS (28)
  1. CYCLOPHOSPHAMIDE [Suspect]
     Active Substance: CYCLOPHOSPHAMIDE
     Dosage: 1 G, TOTAL (ON DAY 3)
     Route: 065
  2. CYCLOPHOSPHAMIDE [Suspect]
     Active Substance: CYCLOPHOSPHAMIDE
     Indication: Anti-glomerular basement membrane disease
     Dosage: 1 GRAM, IN TOTAL(18  WEEK)
     Route: 065
  3. CYCLOPHOSPHAMIDE [Suspect]
     Active Substance: CYCLOPHOSPHAMIDE
     Dosage: UNK
     Route: 064
  4. METHYLPREDNISOLONE [Suspect]
     Active Substance: METHYLPREDNISOLONE
     Indication: Anti-glomerular basement membrane disease
     Dosage: PULSES 2ND(TRIMESTER)
     Route: 065
  5. PREDNISOLONE [Suspect]
     Active Substance: PREDNISOLONE
     Dosage: 2ND (TRIMESTER)
     Route: 065
  6. PREDNISOLONE [Suspect]
     Active Substance: PREDNISOLONE
     Indication: Anti-glomerular basement membrane disease
     Dosage: WEANING(TRIMESTER)
     Route: 048
  7. PREDNISOLONE [Suspect]
     Active Substance: PREDNISOLONE
     Dosage: 1 G
     Route: 065
  8. PREDNISOLONE [Suspect]
     Active Substance: PREDNISOLONE
     Dosage: UNK
     Route: 048
  9. RITUXIMAB [Suspect]
     Active Substance: RITUXIMAB
     Indication: Anti-glomerular basement membrane disease
     Dosage: 1 GRAM, IN TOTAL 2(TRIMESTER)
     Route: 065
  10. RITUXIMAB [Suspect]
     Active Substance: RITUXIMAB
     Dosage: UNK
     Route: 064
  11. ACYCLOVIR [Concomitant]
     Active Substance: ACYCLOVIR
     Indication: Prophylaxis
     Dosage: UNK
     Route: 065
  12. ACYCLOVIR [Concomitant]
     Active Substance: ACYCLOVIR
     Route: 064
  13. ACYCLOVIR [Concomitant]
     Active Substance: ACYCLOVIR
     Route: 064
  14. CEFUROXIME [Concomitant]
     Active Substance: CEFUROXIME
     Indication: Product used for unknown indication
     Dosage: 1.5 GRAM
     Route: 042
  15. CEFUROXIME [Concomitant]
     Active Substance: CEFUROXIME
     Dosage: 1.500G
     Route: 064
  16. CEFUROXIME [Concomitant]
     Active Substance: CEFUROXIME
     Dosage: 1.500G
     Route: 064
  17. IRON [Concomitant]
     Active Substance: IRON
     Indication: Product used for unknown indication
     Dosage: UNK
     Route: 042
  18. IRON [Concomitant]
     Active Substance: IRON
     Route: 064
  19. IRON [Concomitant]
     Active Substance: IRON
     Route: 064
  20. OXYGEN [Concomitant]
     Active Substance: OXYGEN
     Indication: Product used for unknown indication
     Dosage: HIGH-FLOW
     Route: 065
  21. OXYGEN [Concomitant]
     Active Substance: OXYGEN
     Dosage: HIGH-FLOW
     Route: 064
  22. OXYGEN [Concomitant]
     Active Substance: OXYGEN
     Dosage: HIGH-FLOW
     Route: 064
  23. TAZOBACTAM [Concomitant]
     Active Substance: TAZOBACTAM
     Indication: Antibiotic therapy
     Dosage: UNK
     Route: 065
  24. TAZOBACTAM [Concomitant]
     Active Substance: TAZOBACTAM
     Route: 064
  25. TAZOBACTAM [Concomitant]
     Active Substance: TAZOBACTAM
     Route: 064
  26. VALGANCICLOVIR [Concomitant]
     Active Substance: VALGANCICLOVIR
     Indication: Cytomegalovirus infection reactivation
     Dosage: UNK
     Route: 065
  27. VALGANCICLOVIR [Concomitant]
     Active Substance: VALGANCICLOVIR
     Route: 064
  28. VALGANCICLOVIR [Concomitant]
     Active Substance: VALGANCICLOVIR
     Route: 064

REACTIONS (2)
  - Congenital cytomegalovirus infection [Recovered/Resolved]
  - Deafness neurosensory [Recovered/Resolved]
